FAERS Safety Report 8126861-0 (Version None)
Quarter: 2012Q1

REPORT INFORMATION
  Report Type: 
  Country: None (occurrence: None)
  Receive Date: 20120210
  Receipt Date: 20120208
  Transmission Date: 20120608
  Serious: No
  Sender: FDA-Public Use
  Company Number: US-PFIZER INC-2012035759

PATIENT
  Sex: Male
  Weight: 90.703 kg

DRUGS (6)
  1. WELLBUTRIN [Concomitant]
     Indication: ANTIDEPRESSANT THERAPY
     Dosage: 300 MG, DAILY
  2. PAXIL [Concomitant]
     Indication: ANTIDEPRESSANT THERAPY
     Dosage: 40 MG,DAILY
  3. ZOCOR [Concomitant]
     Indication: HYPERTENSION
     Dosage: 10 MG,DAILY
  4. CHANTIX [Suspect]
     Dosage: UNK
     Dates: start: 20120201
  5. CHANTIX [Suspect]
     Indication: SMOKING CESSATION THERAPY
     Dosage: UNK
     Route: 048
  6. ZOCOR [Concomitant]
     Indication: CARDIAC DISORDER

REACTIONS (2)
  - ABDOMINAL DISCOMFORT [None]
  - DRUG INEFFECTIVE [None]
